FAERS Safety Report 8916017 (Version 2)
Quarter: 2012Q4

REPORT INFORMATION
  Report Type: 
  Country: SE (occurrence: SE)
  Receive Date: 20121119
  Receipt Date: 20121129
  Transmission Date: 20130627
  Serious: Yes (Other)
  Sender: FDA-Public Use
  Company Number: SE-GLAXOSMITHKLINE-B0845497A

PATIENT
  Sex: Male

DRUGS (2)
  1. NEOTIGASON [Suspect]
     Indication: PSORIASIS
     Dosage: 10MG Per day
     Route: 048
     Dates: start: 201210
  2. OMEPRAZOLE [Concomitant]
     Indication: ABDOMINAL DISCOMFORT
     Dosage: 20MG Per day
     Route: 065

REACTIONS (3)
  - Headache [Unknown]
  - Swelling [Not Recovered/Not Resolved]
  - Torticollis [Unknown]
